FAERS Safety Report 9029082 (Version 1)
Quarter: 2013Q1

REPORT INFORMATION
  Report Type: Spontaneous
  Country: AU (occurrence: AU)
  Receive Date: 20130122
  Receipt Date: 20130122
  Transmission Date: 20140127
  Serious: Yes (Hospitalization)
  Sender: FDA-Public Use
  Company Number: AU-ROCHE-1180903

PATIENT
  Age: 82 Year
  Sex: Female

DRUGS (7)
  1. CAPECITABINE [Suspect]
     Indication: PRODUCT USED FOR UNKNOWN INDICATION
     Route: 048
     Dates: start: 20120806, end: 20120808
  2. BUDESONIDE [Concomitant]
  3. DOMPERIDONE [Concomitant]
  4. ESOMEPRAZOLE MAGNESIUM TRIHYDRATE [Concomitant]
  5. NICORANDIL [Concomitant]
  6. SALBUTAMOL [Concomitant]
  7. TIOTROPIUM [Concomitant]

REACTIONS (1)
  - Arteriospasm coronary [Recovered/Resolved]
